FAERS Safety Report 5600311-8 (Version None)
Quarter: 2007Q4

REPORT INFORMATION
  Report Type: 
  Country: None (occurrence: None)
  Receive Date: 20071226
  Receipt Date: 20070522
  Transmission Date: 20080405
  Serious: Yes (Other)
  Sender: FDA-Public Use
  Company Number: 239206

PATIENT
  Age: 59 Year
  Sex: Female
  Weight: 135 kg

DRUGS (3)
  1. RAPTIVA [Suspect]
     Indication: PSORIASIS
     Dosage: 0.8 ML, 1/WEEK, SUBCUTANEOUS
     Route: 058
     Dates: start: 20050516, end: 20070207
  2. SORIATANE [Concomitant]
  3. LIPITOR [Concomitant]

REACTIONS (1)
  - THROMBOCYTOPENIA [None]
